FAERS Safety Report 16491116 (Version 1)
Quarter: 2019Q2

REPORT INFORMATION
  Report Type: Report from Study
  Country: CA (occurrence: CA)
  Receive Date: 20190628
  Receipt Date: 20190628
  Transmission Date: 20190711
  Serious: Yes (Other)
  Sender: FDA-Public Use
  Company Number: CA-TEVA-2019-CA-1046516

PATIENT
  Sex: Female

DRUGS (7)
  1. VITAMIN D [Concomitant]
     Active Substance: VITAMIN D NOS
  2. ZOPICLONE [Concomitant]
     Active Substance: ZOPICLONE
  3. PREVEX-B [Concomitant]
  4. TRI-CYCLEN [Concomitant]
     Active Substance: ETHINYL ESTRADIOL\NORGESTIMATE
  5. PANTOPRAZOLE [Concomitant]
     Active Substance: PANTOPRAZOLE
  6. COPAXONE [Suspect]
     Active Substance: GLATIRAMER ACETATE
     Indication: MULTIPLE SCLEROSIS
     Dates: start: 20190430
  7. MYLAN-CLOBETASOL [Concomitant]

REACTIONS (11)
  - Urticaria [Unknown]
  - Hypersensitivity [Unknown]
  - Injection site urticaria [Unknown]
  - Injection site pruritus [Unknown]
  - Pain in extremity [Unknown]
  - Ear swelling [Unknown]
  - Injection site erythema [Unknown]
  - Injection site rash [Unknown]
  - Nail disorder [Unknown]
  - Swelling face [Unknown]
  - Injection site swelling [Unknown]
